FAERS Safety Report 12833820 (Version 3)
Quarter: 2016Q4

REPORT INFORMATION
  Report Type: Spontaneous
  Country: BR (occurrence: BR)
  Receive Date: 20161010
  Receipt Date: 20161107
  Transmission Date: 20170207
  Serious: Yes (Other)
  Sender: FDA-Public Use
  Company Number: BR-SA-2016SA184698

PATIENT
  Age: 61 Year
  Sex: Female
  Weight: 77 kg

DRUGS (7)
  1. METFORMIN [Concomitant]
     Active Substance: METFORMIN HYDROCHLORIDE
     Indication: WEIGHT DECREASED
     Dosage: STRENGTH: 500MG?STARTED: 1 YEAR AGO
     Route: 048
     Dates: start: 2015
  2. LYXUMIA [Suspect]
     Active Substance: LIXISENATIDE
     Indication: WEIGHT DECREASED
     Dosage: ROUTE- INJECTABLE
     Dates: start: 201606
  3. LYXUMIA [Suspect]
     Active Substance: LIXISENATIDE
     Indication: CENTRAL OBESITY
     Dosage: ROUTE- INJECTABLE
     Dates: start: 201606
  4. LYXUMIA [Suspect]
     Active Substance: LIXISENATIDE
     Indication: WEIGHT DECREASED
     Dosage: STRENGTH- 1X10 MCG + 1X20 MCG?ROUTE- INJECTABLE IN THE ABDOMINAL REGION
     Dates: start: 20160928, end: 20160928
  5. LYXUMIA [Suspect]
     Active Substance: LIXISENATIDE
     Indication: CENTRAL OBESITY
     Dosage: STRENGTH- 1X10 MCG + 1X20 MCG?ROUTE- INJECTABLE IN THE ABDOMINAL REGION
     Dates: start: 20160928, end: 20160928
  6. SYNTHROID [Concomitant]
     Active Substance: LEVOTHYROXINE SODIUM
     Indication: HYPOTHYROIDISM
     Dosage: STRENGTH: 112MCG?STARTED: 15 YEARS AGO
     Route: 048
     Dates: start: 2001
  7. NATIFA [Concomitant]
     Active Substance: ESTRADIOL
     Indication: HORMONE REPLACEMENT THERAPY
     Dosage: STRENGTH: 1MG?STARTED: 10 YEARS AGO
     Route: 048
     Dates: start: 2006

REACTIONS (8)
  - Erythema [Recovered/Resolved]
  - Colitis [Recovered/Resolved]
  - Product use issue [Unknown]
  - Pruritus generalised [Recovered/Resolved]
  - Burning sensation [Recovered/Resolved]
  - Nausea [Recovered/Resolved]
  - Hypersensitivity [Recovered/Resolved]
  - Swelling face [Recovered/Resolved]

NARRATIVE: CASE EVENT DATE: 2016
